FAERS Safety Report 10362774 (Version 1)
Quarter: 2014Q1

REPORT INFORMATION
  Report Type: Spontaneous
  Country: US (occurrence: None)
  Receive Date: 20140306
  Receipt Date: 20140306
  Transmission Date: 20141002
  Serious: Yes (Hospitalization, Other)
  Sender: FDA-Public Use
  Company Number: 163-21880-13031321

PATIENT
  Age: 53 Year
  Sex: Male

DRUGS (11)
  1. REVLIMID [Suspect]
     Indication: PLASMA CELL MYELOMA
     Dosage: 25 MG, 21 IN 21 D, PO
     Route: 048
     Dates: start: 20130115
  2. ASPIRIN [Concomitant]
  3. BENICAR [Concomitant]
  4. CRESTOR [Concomitant]
  5. DEXAMETHASONE [Concomitant]
  6. FIBER CHOICE (PLANTAGO OVATA FIBRE) (TABLETS) [Concomitant]
  7. NEURONTIN [Concomitant]
  8. OXYCODONE HCL [Concomitant]
  9. PEPCID [Concomitant]
  10. VALIUM [Concomitant]
  11. ZOMETA (ZOLEDRONIC ACID) (UNKNOWN) [Concomitant]

REACTIONS (2)
  - Eye infection [None]
  - Bone pain [None]
